FAERS Safety Report 18630779 (Version 1)
Quarter: 2020Q4

REPORT INFORMATION
  Report Type: Report from Study
  Country: CA (occurrence: CA)
  Receive Date: 20201218
  Receipt Date: 20201218
  Transmission Date: 20210114
  Serious: Yes (Hospitalization)
  Sender: FDA-Public Use
  Company Number: CA-JNJFOC-20201226286

PATIENT
  Age: 9 Year
  Sex: Female
  Weight: 28.4 kg

DRUGS (4)
  1. PROFERRIN [Concomitant]
     Active Substance: IRON
  2. VITAMIN D [ERGOCALCIFEROL] [Concomitant]
     Active Substance: ERGOCALCIFEROL
  3. INFLIXIMAB, RECOMBINANT [Suspect]
     Active Substance: INFLIXIMAB
     Indication: INFLAMMATORY BOWEL DISEASE
     Route: 042
     Dates: start: 20161108, end: 20170926
  4. 5-ASA [Concomitant]
     Active Substance: MESALAMINE
     Route: 054

REACTIONS (1)
  - Lymphadenitis bacterial [Recovered/Resolved]

NARRATIVE: CASE EVENT DATE: 20200118
